FAERS Safety Report 5312798-9 (Version None)
Quarter: 2007Q2

REPORT INFORMATION
  Report Type: 
  Country: None (occurrence: None)
  Receive Date: 20070430
  Receipt Date: 20070423
  Transmission Date: 20071010
  Serious: Yes (Other)
  Sender: FDA-Public Use
  Company Number: US-SHR-US-2007-014291

PATIENT
  Age: 29 Year
  Sex: Female
  Weight: 86.2 kg

DRUGS (4)
  1. MIRENA [Suspect]
     Indication: CONTRACEPTION
     Dosage: 20 A?G/DAY, CONT
     Route: 015
     Dates: start: 20061101
  2. LIPITOR [Concomitant]
  3. NOVOLOG [Concomitant]
     Dosage: .7 UNITS EVERY HOUR
  4. NOVOLOG [Concomitant]
     Dosage: 1 UNIT EVERY HOUR

REACTIONS (4)
  - GLYCOSYLATED HAEMOGLOBIN INCREASED [None]
  - INJECTION SITE ERYTHEMA [None]
  - INJECTION SITE PAIN [None]
  - METRORRHAGIA [None]
